FAERS Safety Report 5726668-5 (Version None)
Quarter: 2008Q2

REPORT INFORMATION
  Report Type: 
  Country: None (occurrence: None)
  Receive Date: 20080502
  Receipt Date: 20080421
  Transmission Date: 20081010
  Serious: Yes (Hospitalization)
  Sender: FDA-Public Use
  Company Number: DE-PFIZER INC-2008034817

PATIENT
  Sex: Female

DRUGS (3)
  1. SU-011,248 [Suspect]
     Indication: OVARIAN CANCER
     Route: 048
     Dates: start: 20080416, end: 20080418
  2. METOPROLOL TARTRATE [Concomitant]
     Route: 048
  3. EUTHYROX [Concomitant]
     Route: 048

REACTIONS (1)
  - FACE OEDEMA [None]
